FAERS Safety Report 14579147 (Version 4)
Quarter: 2020Q3

REPORT INFORMATION
  Report Type: Spontaneous
  Country: CA (occurrence: CA)
  Receive Date: 20180227
  Receipt Date: 20200806
  Transmission Date: 20201102
  Serious: Yes (Hospitalization)
  Sender: FDA-Public Use
  Company Number: CA-PFIZER INC-2018070648

PATIENT
  Age: 54 Year
  Sex: Male
  Weight: 62 kg

DRUGS (7)
  1. ARISTOCORT [Concomitant]
     Active Substance: TRIAMCINOLONE DIACETATE
     Dosage: 0.1%, AS NEEDED
  2. COUMADIN [Concomitant]
     Active Substance: WARFARIN SODIUM
     Dosage: 5 MG, 1X/DAY
  3. TOLOXIN [Concomitant]
     Active Substance: DIGOXIN
     Dosage: 125 UG, 1X/DAY
  4. REVATIO [Suspect]
     Active Substance: SILDENAFIL CITRATE
     Indication: PULMONARY ARTERIAL HYPERTENSION
     Dosage: 80 MG, 3X/DAY
     Route: 048
     Dates: start: 20110512
  5. CARIPUL [Concomitant]
     Active Substance: EPOPROSTENOL
     Dosage: UNK
     Dates: start: 20131009, end: 20180220
  6. UPTRAVI [Concomitant]
     Active Substance: SELEXIPAG
     Dosage: 1600 UG, 2X/DAY
     Dates: start: 20180215
  7. K?DUR [Concomitant]
     Active Substance: POTASSIUM CHLORIDE
     Dosage: 1500 MG, 2X/DAY

REACTIONS (2)
  - Prescribed overdose [Unknown]
  - Device breakage [Unknown]

NARRATIVE: CASE EVENT DATE: 20110512
